FAERS Safety Report 8827168 (Version 2)
Quarter: 2012Q4

REPORT INFORMATION
  Report Type: 
  Country: FR (occurrence: FR)
  Receive Date: 20121005
  Receipt Date: 20121024
  Transmission Date: 20130627
  Serious: Yes (Hospitalization)
  Sender: FDA-Public Use
  Company Number: FR-ABBOTT-12P-056-0990752-00

PATIENT
  Age: 63 Year
  Sex: Female

DRUGS (7)
  1. DEPAKOTE [Suspect]
     Indication: BIPOLAR DISORDER
     Dosage: Daily
     Route: 048
     Dates: start: 20090505, end: 20120717
  2. ALPRAZOLAM [Suspect]
     Indication: BIPOLAR DISORDER
     Dosage: Daily
     Route: 048
     Dates: start: 20090319
  3. MESALAZINE [Suspect]
     Indication: CROHN^S DISEASE
     Route: 048
  4. CYAMEMAZINE [Suspect]
     Indication: BIPOLAR DISORDER
     Dosage: Daily
     Route: 048
  5. VENLAFAXINE [Suspect]
     Dosage: Daily
     Route: 048
     Dates: start: 2007
  6. AZATHIOPRINE [Suspect]
     Route: 048
  7. LAMOTRIGINE [Concomitant]
     Indication: PRODUCT USED FOR UNKNOWN INDICATION
     Dates: start: 20120703

REACTIONS (1)
  - Lymphopenia [Unknown]
